FAERS Safety Report 19674489 (Version 4)
Quarter: 2021Q4

REPORT INFORMATION
  Report Type: Report from Study
  Country: None (occurrence: US)
  Receive Date: 20210809
  Receipt Date: 20211025
  Transmission Date: 20220303
  Serious: Yes (Other)
  Sender: FDA-Public Use
  Company Number: US-ABBVIE-21K-163-3917255-00

PATIENT
  Age: 30 Year
  Sex: Female
  Weight: 59.02 kg

DRUGS (8)
  1. HUMIRA [Suspect]
     Active Substance: ADALIMUMAB
     Indication: Hidradenitis
     Route: 058
     Dates: start: 20210416
  2. HUMIRA [Suspect]
     Active Substance: ADALIMUMAB
     Indication: Systemic lupus erythematosus
     Route: 058
  3. HUMIRA [Suspect]
     Active Substance: ADALIMUMAB
     Route: 058
  4. PFIZER-BIONTECH COVID-19 VACCINE [Concomitant]
     Active Substance: TOZINAMERAN
     Indication: COVID-19 immunisation
     Route: 030
     Dates: start: 20210820, end: 20210820
  5. RELPAX [Concomitant]
     Active Substance: ELETRIPTAN HYDROBROMIDE
     Indication: Migraine
  6. HYDROXYCHLOROQUINE [Concomitant]
     Active Substance: HYDROXYCHLOROQUINE
     Indication: Systemic lupus erythematosus
  7. CYMBALTA [Concomitant]
     Active Substance: DULOXETINE HYDROCHLORIDE
     Indication: Systemic lupus erythematosus
  8. DULOXETINE [Concomitant]
     Active Substance: DULOXETINE
     Indication: Systemic lupus erythematosus

REACTIONS (13)
  - Seizure [Recovered/Resolved]
  - Fatigue [Not Recovered/Not Resolved]
  - Cyst [Unknown]
  - Cough [Not Recovered/Not Resolved]
  - Injection site irritation [Unknown]
  - Sinus congestion [Not Recovered/Not Resolved]
  - Hypersensitivity [Unknown]
  - Hidradenitis [Not Recovered/Not Resolved]
  - Nasopharyngitis [Not Recovered/Not Resolved]
  - Confusional state [Recovered/Resolved]
  - Injection site discomfort [Not Recovered/Not Resolved]
  - Injection site swelling [Not Recovered/Not Resolved]
  - Injection site erythema [Not Recovered/Not Resolved]

NARRATIVE: CASE EVENT DATE: 20210101
